FAERS Safety Report 7224240-1 (Version None)
Quarter: 2011Q1

REPORT INFORMATION
  Report Type: 
  Country: None (occurrence: None)
  Receive Date: 20110106
  Receipt Date: 20110106
  Transmission Date: 20110831
  Serious: Yes (Other)
  Sender: FDA-Public Use
  Company Number: None

PATIENT
  Age: 74 Year
  Sex: Female
  Weight: 88.905 kg

DRUGS (2)
  1. ESTROPIPATE [Concomitant]
  2. BENICAR [Suspect]
     Indication: HYPERTENSION
     Dosage: 1 DAILY PO  APPROX 4-5 YEARS
     Route: 048

REACTIONS (8)
  - WEIGHT INCREASED [None]
  - FATIGUE [None]
  - VERTIGO [None]
  - PRODUCT QUALITY ISSUE [None]
  - IRRITABILITY [None]
  - NERVOUSNESS [None]
  - EPISTAXIS [None]
  - BLOOD PRESSURE INCREASED [None]
